FAERS Safety Report 21376507 (Version 1)
Quarter: 2022Q3

REPORT INFORMATION
  Report Type: Spontaneous
  Country: ES (occurrence: ES)
  Receive Date: 20220926
  Receipt Date: 20220926
  Transmission Date: 20221027
  Serious: Yes (Hospitalization)
  Sender: FDA-Public Use
  Company Number: None

PATIENT
  Age: 76 Year
  Sex: Female

DRUGS (11)
  1. HYDROCHLOROTHIAZIDE\OLMESARTAN MEDOXOMIL [Suspect]
     Active Substance: HYDROCHLOROTHIAZIDE\OLMESARTAN MEDOXOMIL
     Indication: Hypertension
     Dosage: 1.0 COMP C/24 H, END DATE: NOT ASKED
     Dates: start: 20211231
  2. SERTRALINE [Suspect]
     Active Substance: SERTRALINE HYDROCHLORIDE
     Indication: Depression
     Dosage: 1.0 COMP C/24 H, SERTRALIN (2537A), END DATE: NOT ASKED
     Dates: start: 20220819
  3. FUROSEMIDE [Suspect]
     Active Substance: FUROSEMIDE
     Indication: Hypertension
     Dosage: C/24 H, 40 MG TABLETS EFG, 30 TABLETS, END DATE: NOT ASKED
     Dates: start: 20220804
  4. OMEPRAZOL CINFA [Concomitant]
     Indication: Dyspepsia
     Dosage: 20.0 MG A-DE, 20 MG EFG, 56 CAPSULES (BOTTLE)
     Dates: start: 20190215
  5. ATORVASTATIN CINFA [Concomitant]
     Indication: Bronchiectasis
     Dosage: 20.0MG EC, 20 MG EFG, 28 TABLETS
     Dates: start: 20211230
  6. LEVOTHYROXINE SODIUM [Concomitant]
     Active Substance: LEVOTHYROXINE SODIUM
     Indication: Hypothyroidism
     Dosage: 50.0 MCG A-DE, 50 MICROGRAMS TABLETS, 100 TABLETS,
     Dates: start: 20210901
  7. PARACETAMOL CINFA [Concomitant]
     Indication: Enthesopathy
     Dosage: 1.0 G DECOCE, 1 G TABLETS EFG, 40 TABLETS
     Dates: start: 20190912
  8. BISOPROLOL FUMARATE [Concomitant]
     Active Substance: BISOPROLOL FUMARATE
     Indication: Atrial fibrillation
     Dosage: 5.0 MG A-DECE, 5 MG TABLETS EFG, 60 TABLETS (PVC/PVDC-ALUMINUM BLISTER)
     Dates: start: 20220513
  9. OLMESARTAN MEDOXOMIL [Concomitant]
     Active Substance: OLMESARTAN MEDOXOMIL
     Indication: Hypertension
     Dosage: 20.0 MG DE, 20 MG, 28 TABLETS
     Dates: start: 20220524
  10. METFORMIN CINFA [Concomitant]
     Indication: Type 2 diabetes mellitus
     Dosage: 850.0 MG , 850 MG EFG , 50 TABLETS
     Dates: start: 20201217
  11. ELIQUIS [Concomitant]
     Active Substance: APIXABAN
     Indication: Atrial fibrillation
     Dosage: 5.0 MG C/12 H, 5 MG, 60 TABLETS
     Dates: start: 20210219

REACTIONS (3)
  - Dizziness [Recovered/Resolved]
  - Syncope [Recovered/Resolved]
  - Hyponatraemia [Recovered/Resolved]

NARRATIVE: CASE EVENT DATE: 20220821
